FAERS Safety Report 9271564 (Version 1)
Quarter: 2013Q2

REPORT INFORMATION
  Report Type: Report from Study
  Country: US (occurrence: US)
  Receive Date: 20130506
  Receipt Date: 20130506
  Transmission Date: 20140414
  Serious: Yes (Other)
  Sender: FDA-Public Use
  Company Number: US-ROCHE-1217110

PATIENT
  Age: 53 Year
  Sex: Female

DRUGS (3)
  1. CAPECITABINE [Suspect]
     Indication: SKIN CANCER
     Dosage: 500 TO 1500 MG/M2 ON DAYS 1 TO 14 OF A 21 DAY CYCLE, AVERAGE DAILY DOSE 15.3MG/KG FOR 19 MONTHS
     Route: 048
  2. PREDNISONE [Concomitant]
  3. RAPAMUNE [Concomitant]

REACTIONS (7)
  - Palmar-plantar erythrodysaesthesia syndrome [Unknown]
  - Diarrhoea [Unknown]
  - Nausea [Unknown]
  - Gout [Recovering/Resolving]
  - Blood creatinine increased [Unknown]
  - Asthenia [Unknown]
  - Fatigue [Unknown]
